FAERS Safety Report 23789196 (Version 1)
Quarter: 2024Q2

REPORT INFORMATION
  Report Type: Spontaneous
  Country: CN (occurrence: CN)
  Receive Date: 20240426
  Receipt Date: 20240426
  Transmission Date: 20240716
  Serious: Yes (Other)
  Sender: FDA-Public Use
  Company Number: CN-JNJFOC-20240455229

PATIENT

DRUGS (1)
  1. IMBRUVICA [Suspect]
     Active Substance: IBRUTINIB
     Indication: Product used for unknown indication
     Route: 048

REACTIONS (38)
  - Pneumonitis [Unknown]
  - Pulmonary haemorrhage [Unknown]
  - Retching [Unknown]
  - Nail disorder [Unknown]
  - Peripheral sensory neuropathy [Unknown]
  - Haemorrhage [Unknown]
  - Rash macular [Unknown]
  - Rash [Unknown]
  - Cough [Unknown]
  - Product quality issue [Unknown]
  - Dyspnoea exertional [Unknown]
  - Abdominal distension [Unknown]
  - Sepsis [Unknown]
  - Epistaxis [Unknown]
  - Arrhythmia [Unknown]
  - Infection [Unknown]
  - Syncope [Unknown]
  - Myelosuppression [Unknown]
  - Taste disorder [Unknown]
  - Cardiomyopathy [Unknown]
  - Pharyngitis [Unknown]
  - Cellulitis [Unknown]
  - Pancytopenia [Unknown]
  - Cardiac failure [Unknown]
  - Headache [Unknown]
  - Gastrointestinal motility disorder [Unknown]
  - Atrial fibrillation [Unknown]
  - Dyspepsia [Unknown]
  - Urinary tract infection [Unknown]
  - Hypoxia [Unknown]
  - Lymphocytosis [Unknown]
  - Onychoclasis [Unknown]
  - Atrial flutter [Unknown]
  - Petechiae [Unknown]
  - White blood cell count increased [Unknown]
  - Febrile neutropenia [Unknown]
  - Cheilosis [Unknown]
  - Mouth haemorrhage [Unknown]
